FAERS Safety Report 12692377 (Version 2)
Quarter: 2016Q3

REPORT INFORMATION
  Report Type: Spontaneous
  Country: US (occurrence: US)
  Receive Date: 20160828
  Receipt Date: 20160926
  Transmission Date: 20161109
  Serious: No
  Sender: FDA-Public Use
  Company Number: US-ASTRAZENECA-2016SE85885

PATIENT
  Sex: Female
  Weight: 59.9 kg

DRUGS (3)
  1. SLEW OF MEDICATION [Concomitant]
  2. SYMBICORT [Suspect]
     Active Substance: BUDESONIDE\FORMOTEROL FUMARATE DIHYDRATE
     Indication: ASTHMA
     Dosage: 160/4.5 MCG INHALER, 2 PUFFS TWICE PER DAY
     Route: 055
  3. SYMBICORT [Suspect]
     Active Substance: BUDESONIDE\FORMOTEROL FUMARATE DIHYDRATE
     Indication: BRONCHITIS CHRONIC
     Dosage: 160/4.5 MCG INHALER, 2 PUFFS TWICE PER DAY
     Route: 055

REACTIONS (3)
  - Malaise [Unknown]
  - Drug dose omission [Unknown]
  - Product quality issue [Unknown]
